FAERS Safety Report 7063200-0 (Version None)
Quarter: 2010Q4

REPORT INFORMATION
  Report Type: 
  Country: None (occurrence: None)
  Receive Date: 20101026
  Receipt Date: 20100514
  Transmission Date: 20110411
  Serious: No
  Sender: FDA-Public Use
  Company Number: US-PFIZER INC-2010062705

PATIENT
  Sex: Male
  Weight: 108.86 kg

DRUGS (4)
  1. LIPITOR [Suspect]
     Dosage: 40 MG, 1X/DAY
     Route: 048
     Dates: end: 20100321
  2. LISINOPRIL [Concomitant]
     Dosage: UNK
  3. DIGOXIN [Concomitant]
     Dosage: UNK
  4. ISOSORBIDE DINITRATE [Concomitant]
     Dosage: UNK

REACTIONS (2)
  - MUSCULAR WEAKNESS [None]
  - MYALGIA [None]
